FAERS Safety Report 8810123 (Version 3)
Quarter: 2015Q3

REPORT INFORMATION
  Report Type: Report from Study
  Country: US (occurrence: US)
  Receive Date: 20120926
  Receipt Date: 20150819
  Transmission Date: 20151125
  Serious: Yes (Death, Other)
  Sender: FDA-Public Use
  Company Number: US-ROCHE-1127808

PATIENT
  Sex: Female

DRUGS (30)
  1. HERCEPTIN [Suspect]
     Active Substance: TRASTUZUMAB
     Route: 065
  2. MITOMYCIN. [Concomitant]
     Active Substance: MITOMYCIN
  3. BENADRYL [Concomitant]
     Active Substance: DIPHENHYDRAMINE HYDROCHLORIDE
     Route: 065
  4. HERCEPTIN [Suspect]
     Active Substance: TRASTUZUMAB
     Indication: BREAST CANCER FEMALE
     Route: 065
     Dates: start: 20050812, end: 20060705
  5. HERCEPTIN [Suspect]
     Active Substance: TRASTUZUMAB
     Route: 065
  6. NAVELBINE [Concomitant]
     Active Substance: VINORELBINE TARTRATE
     Route: 065
  7. DECADRON [Concomitant]
     Active Substance: DEXAMETHASONE
     Route: 042
  8. DECADRON [Concomitant]
     Active Substance: DEXAMETHASONE
     Route: 065
  9. AVASTIN [Suspect]
     Active Substance: BEVACIZUMAB
     Indication: BREAST CANCER FEMALE
     Route: 042
     Dates: start: 20050812, end: 20060705
  10. DOXIL [Concomitant]
     Active Substance: DOXORUBICIN HYDROCHLORIDE
     Route: 065
  11. TAXOTERE [Concomitant]
     Active Substance: DOCETAXEL
     Route: 065
  12. AVASTIN [Suspect]
     Active Substance: BEVACIZUMAB
     Route: 042
     Dates: start: 20060315, end: 20060426
  13. CARBOPLATIN. [Concomitant]
     Active Substance: CARBOPLATIN
     Route: 065
  14. KYTRIL [Concomitant]
     Active Substance: GRANISETRON HYDROCHLORIDE
     Route: 065
  15. EMEND [Concomitant]
     Active Substance: APREPITANT
     Route: 065
  16. CARBOPLATIN. [Concomitant]
     Active Substance: CARBOPLATIN
     Route: 065
  17. ALOXI [Concomitant]
     Active Substance: PALONOSETRON HYDROCHLORIDE
     Route: 065
  18. HERCEPTIN [Suspect]
     Active Substance: TRASTUZUMAB
     Route: 065
  19. HERCEPTIN [Suspect]
     Active Substance: TRASTUZUMAB
     Route: 065
  20. CISPLATIN. [Concomitant]
     Active Substance: CISPLATIN
  21. CARBOPLATIN. [Concomitant]
     Active Substance: CARBOPLATIN
     Route: 065
  22. DECADRON [Concomitant]
     Active Substance: DEXAMETHASONE
     Route: 065
  23. ARANESP [Concomitant]
     Active Substance: DARBEPOETIN ALFA
     Route: 065
  24. HERCEPTIN [Suspect]
     Active Substance: TRASTUZUMAB
     Dosage: 4MG/KG
     Route: 065
  25. XELODA [Suspect]
     Active Substance: CAPECITABINE
     Indication: BREAST CANCER FEMALE
     Route: 065
  26. CIPROFLOXACIN. [Concomitant]
     Active Substance: CIPROFLOXACIN
     Route: 065
  27. LAPATINIB [Concomitant]
     Active Substance: LAPATINIB
     Route: 048
  28. TAGAMET [Concomitant]
     Active Substance: CIMETIDINE
     Route: 065
  29. BENADRYL [Concomitant]
     Active Substance: DIPHENHYDRAMINE HYDROCHLORIDE
     Route: 065
  30. GEMZAR [Concomitant]
     Active Substance: GEMCITABINE HYDROCHLORIDE
     Route: 065

REACTIONS (26)
  - Erythema [Unknown]
  - Abdominal pain [Unknown]
  - Alopecia [Unknown]
  - Abdominal pain upper [Unknown]
  - Off label use [Unknown]
  - Deep vein thrombosis [Unknown]
  - Photopsia [Unknown]
  - Breath sounds abnormal [Unknown]
  - Pain in extremity [Unknown]
  - Pain [Recovered/Resolved]
  - Ill-defined disorder [Unknown]
  - Pulmonary mass [Unknown]
  - Cough [Unknown]
  - Disease progression [Unknown]
  - Thrombophlebitis [Unknown]
  - Epistaxis [Unknown]
  - Cellulitis [Unknown]
  - Embolism [Unknown]
  - Death [Fatal]
  - Fatigue [Unknown]
  - Pyrexia [Unknown]
  - Drug ineffective [Unknown]
  - Metastases to central nervous system [Unknown]
  - Tenderness [Unknown]
  - Depression [Unknown]
  - Treatment failure [Unknown]
